FAERS Safety Report 24850073 (Version 1)
Quarter: 2025Q1

REPORT INFORMATION
  Report Type: Report from Study
  Country: US (occurrence: US)
  Receive Date: 20250116
  Receipt Date: 20250116
  Transmission Date: 20250409
  Serious: Yes (Hospitalization, Other)
  Sender: ABBVIE
  Company Number: US-ABBVIE-6056093

PATIENT
  Age: 58 Year
  Sex: Male
  Weight: 92.079 kg

DRUGS (4)
  1. RINVOQ [Suspect]
     Active Substance: UPADACITINIB
     Indication: Rheumatoid arthritis
     Dosage: FORM STRENGTH : 15 MILLIGRAM
     Route: 048
     Dates: start: 20230325, end: 20241204
  2. METHOTREXATE [Concomitant]
     Active Substance: METHOTREXATE
     Indication: Rheumatoid arthritis
  3. ALBUTEROL [Concomitant]
     Active Substance: ALBUTEROL
     Indication: Alpha-1 antitrypsin deficiency
  4. TEZSPIRE [Concomitant]
     Active Substance: TEZEPELUMAB-EKKO
     Indication: Alpha-1 antitrypsin deficiency

REACTIONS (11)
  - Cerebellar stroke [Recovering/Resolving]
  - Headache [Recovered/Resolved]
  - Speech disorder [Recovered/Resolved]
  - Cerebral disorder [Unknown]
  - Paraesthesia [Recovering/Resolving]
  - Coordination abnormal [Unknown]
  - Eye pain [Recovering/Resolving]
  - Hypoaesthesia [Recovering/Resolving]
  - Diplopia [Recovered/Resolved]
  - Gait disturbance [Recovering/Resolving]
  - Blindness [Recovered/Resolved]

NARRATIVE: CASE EVENT DATE: 20240101
